FAERS Safety Report 8595654-2 (Version None)
Quarter: 2012Q3

REPORT INFORMATION
  Report Type: 
  Country: None (occurrence: None)
  Receive Date: 20120801
  Receipt Date: 20120705
  Transmission Date: 20120928
  Serious: Yes (Other)
  Sender: FDA-Public Use
  Company Number: 001296432A

PATIENT
  Age: 14 Year
  Sex: Female

DRUGS (2)
  1. PROACTIV REPAIRING TREATMENT [Suspect]
     Indication: ACNE
     Dosage: USED TWICE DERMAL
     Dates: start: 20120618, end: 20120630
  2. PROACTIV CLEANSER [Suspect]
     Indication: ACNE
     Dosage: USED TWICE DERMAL
     Dates: start: 20120618, end: 20120630

REACTIONS (4)
  - SWELLING FACE [None]
  - PRURITUS [None]
  - THROAT TIGHTNESS [None]
  - DRUG INEFFECTIVE [None]
